APPROVED DRUG PRODUCT: MEPERIDINE HYDROCHLORIDE
Active Ingredient: MEPERIDINE HYDROCHLORIDE
Strength: 50MG
Dosage Form/Route: TABLET;ORAL
Application: A040331 | Product #001 | TE Code: AA
Applicant: EPIC PHARMA LLC
Approved: May 28, 1999 | RLD: No | RS: Yes | Type: RX